FAERS Safety Report 8135556 (Version 2)
Quarter: 2017Q4

REPORT INFORMATION
  Report Type: Spontaneous
  Country: US (occurrence: US)
  Receive Date: 20110914
  Receipt Date: 20171003
  Transmission Date: 20180321
  Serious: Yes (Hospitalization, Other)
  Sender: FDA-Public Use
  Company Number: US-ROCHE-801819

PATIENT
  Age: 62 Year
  Sex: Female

DRUGS (2)
  1. FOSAMAX [Suspect]
     Active Substance: ALENDRONATE SODIUM
     Indication: OSTEOPOROSIS
     Route: 065
     Dates: start: 2002, end: 2007
  2. BONIVA [Suspect]
     Active Substance: IBANDRONATE SODIUM
     Indication: OSTEOPOROSIS
     Dosage: DOSE: 3MG/ML.
     Route: 042
     Dates: start: 2005, end: 2008

REACTIONS (4)
  - Emotional distress [Unknown]
  - Femur fracture [Unknown]
  - Low turnover osteopathy [Unknown]
  - Bone disorder [Unknown]

NARRATIVE: CASE EVENT DATE: 20071213
